FAERS Safety Report 14027991 (Version 1)
Quarter: 2017Q3

REPORT INFORMATION
  Report Type: Spontaneous
  Country: US (occurrence: None)
  Receive Date: 20170929
  Receipt Date: 20170929
  Transmission Date: 20171128
  Serious: No
  Sender: FDA-Public Use
  Company Number: None

PATIENT
  Age: 63 Year
  Sex: Female

DRUGS (1)
  1. BOTOX [Suspect]
     Active Substance: ONABOTULINUMTOXINA

REACTIONS (5)
  - Injection site haemorrhage [None]
  - Wound [None]
  - Injection site pain [None]
  - Wound haemorrhage [None]
  - Skin discolouration [None]

NARRATIVE: CASE EVENT DATE: 20170929
